FAERS Safety Report 25120820 (Version 1)
Quarter: 2025Q1

REPORT INFORMATION
  Report Type: Report from Study
  Country: US (occurrence: US)
  Receive Date: 20250325
  Receipt Date: 20250325
  Transmission Date: 20250408
  Serious: Yes (Other)
  Sender: ABBVIE
  Company Number: US-ABBVIE-6155792

PATIENT
  Age: 72 Year
  Sex: Female
  Weight: 83.914 kg

DRUGS (2)
  1. SKYRIZI [Suspect]
     Active Substance: RISANKIZUMAB-RZAA
     Indication: Crohn^s disease
     Dosage: FORM STRENGTH: 180  MG
     Route: 058
     Dates: start: 20240312
  2. RECLAST [Concomitant]
     Active Substance: ZOLEDRONIC ACID
     Indication: Osteopenia

REACTIONS (4)
  - Intervertebral disc protrusion [Recovering/Resolving]
  - Sinusitis [Recovered/Resolved]
  - COVID-19 [Recovered/Resolved]
  - Back pain [Recovering/Resolving]

NARRATIVE: CASE EVENT DATE: 20241001
